FAERS Safety Report 8478357 (Version 2)
Quarter: 2013Q2

REPORT INFORMATION
  Report Type: Spontaneous
  Country: FR (occurrence: FR)
  Receive Date: 20120327
  Receipt Date: 20130521
  Transmission Date: 20140414
  Serious: Yes (Life-Threatening, Hospitalization)
  Sender: FDA-Public Use
  Company Number: FR-PFIZER INC-2012077060

PATIENT
  Age: 71 Year
  Sex: Female

DRUGS (6)
  1. CARBOPLATIN [Suspect]
     Indication: ENDOMETRIAL CANCER
     Dosage: 110 MG, UNK
     Route: 042
     Dates: start: 20100809, end: 20100809
  2. PACLITAXEL [Suspect]
     Indication: ENDOMETRIAL CANCER
     Dosage: 325 MG, UNK
     Route: 042
     Dates: start: 20100809, end: 20100809
  3. ZOPHREN [Suspect]
     Indication: PREMEDICATION
     Dosage: 8 MG, UNK
     Route: 042
     Dates: start: 20100809, end: 20100809
  4. AZANTAC [Suspect]
     Indication: PREMEDICATION
     Dosage: 50 MG, UNK
     Route: 042
     Dates: start: 20100809, end: 20100809
  5. POLARAMINE [Concomitant]
     Dosage: 0.5 MG, UNK
     Dates: start: 20100809, end: 20100809
  6. METHYLPREDNISOLONE [Concomitant]
     Dosage: 120 MG, UNK
     Dates: start: 20100809, end: 20100809

REACTIONS (7)
  - Anaphylactic shock [Recovered/Resolved]
  - Cardio-respiratory arrest [Recovered/Resolved]
  - Bradycardia [Recovered/Resolved]
  - Skin reaction [Recovered/Resolved]
  - Hypotension [Recovered/Resolved]
  - Malaise [Recovered/Resolved]
  - Coma [Unknown]
